FAERS Safety Report 13513898 (Version 1)
Quarter: 2017Q2

REPORT INFORMATION
  Report Type: Spontaneous
  Country: FR (occurrence: FR)
  Receive Date: 20170504
  Receipt Date: 20170504
  Transmission Date: 20170830
  Serious: Yes (Death, Hospitalization, Congenital Anomaly)
  Sender: FDA-Public Use
  Company Number: FR-SA-2017SA079291

PATIENT
  Age: 0 Day
  Sex: Female
  Weight: 2.4 kg

DRUGS (6)
  1. DEROXAT [Suspect]
     Active Substance: PAROXETINE HYDROCHLORIDE
     Dosage: FORM:- FILM COATED DIVISIBLE TABLET
     Route: 064
     Dates: start: 20131024, end: 20140707
  2. ATARAX [Suspect]
     Active Substance: HYDROXYZINE HYDROCHLORIDE
     Dosage: FORM:- FILM COATED DIVISIBLE TABLET
     Route: 064
     Dates: start: 20131024, end: 20140707
  3. VALIUM [Suspect]
     Active Substance: DIAZEPAM
     Dosage: DIVISIBLE TABLET
     Route: 064
     Dates: start: 20131024, end: 20140707
  4. TERCIAN [Suspect]
     Active Substance: CYAMEMAZINE
     Dosage: FORM:- FILM COATED DIVISIBLE TABLET?DOSE:- 25 MG/ 4-8 PER DAY
     Route: 064
     Dates: start: 20131024, end: 20140707
  5. XEROQUEL LP [Suspect]
     Active Substance: QUETIAPINE FUMARATE
     Route: 064
     Dates: start: 20131024, end: 20140707
  6. STILNOX [Suspect]
     Active Substance: ZOLPIDEM TARTRATE
     Dosage: FORM:- FILM COATED DIVISIBLE TABLET?DOSE:- 1-2/ DAY
     Route: 064
     Dates: start: 20131024, end: 20140707

REACTIONS (7)
  - Low birth weight baby [Recovered/Resolved with Sequelae]
  - Drug withdrawal syndrome neonatal [Recovered/Resolved]
  - Somnolence neonatal [Recovered/Resolved]
  - Foetal exposure during pregnancy [Unknown]
  - Micrognathia [Not Recovered/Not Resolved]
  - Hypotonia neonatal [Recovered/Resolved]
  - Neonatal respiratory distress syndrome [Recovered/Resolved]

NARRATIVE: CASE EVENT DATE: 20140707
